FAERS Safety Report 5000803-9 (Version None)
Quarter: 2006Q2

REPORT INFORMATION
  Report Type: 
  Country: None (occurrence: None)
  Receive Date: 20060512
  Receipt Date: 20051012
  Transmission Date: 20061013
  Serious: Yes (Death, Hospitalization, Other)
  Sender: FDA-Public Use
  Company Number: PR-MERCK-0510USA08002

PATIENT
  Age: 66 Year
  Sex: Male
  Weight: 60 kg

DRUGS (11)
  1. VIOXX [Suspect]
     Indication: ARTHRALGIA
     Route: 048
     Dates: start: 20010101, end: 20040101
  2. PLAVIX [Concomitant]
     Indication: ANTICOAGULANT THERAPY
     Route: 065
     Dates: start: 20020205, end: 20020311
  3. LIPITOR [Concomitant]
     Indication: BLOOD CHOLESTEROL
     Route: 065
     Dates: start: 20030212, end: 20031205
  4. AVAPRO [Concomitant]
     Indication: HYPERTENSION
     Route: 065
     Dates: start: 20011205, end: 20031021
  5. CATAPRES [Concomitant]
     Indication: HYPERTENSION
     Route: 065
     Dates: start: 20011205, end: 20030212
  6. PHOSLO [Concomitant]
     Indication: RENAL DISORDER
     Route: 065
     Dates: start: 20020402, end: 20030816
  7. VERELAN [Concomitant]
     Indication: HYPERTENSION
     Route: 065
     Dates: start: 20011205, end: 20030212
  8. NORVASC [Concomitant]
     Indication: CHEST PAIN
     Route: 065
     Dates: start: 20030212, end: 20031205
  9. RANITIDINE [Concomitant]
     Indication: ULCER
     Route: 065
     Dates: start: 20020712, end: 20031205
  10. ATENOLOL [Concomitant]
     Indication: HYPERTENSION
     Route: 065
     Dates: start: 20021017, end: 20030212
  11. COZAAR [Concomitant]
     Route: 048
     Dates: start: 20011205, end: 20031021

REACTIONS (21)
  - ACUTE RESPIRATORY FAILURE [None]
  - ANAEMIA [None]
  - ARTHRITIS [None]
  - BURNING SENSATION [None]
  - CARDIAC FAILURE CONGESTIVE [None]
  - CARDIO-RESPIRATORY ARREST [None]
  - CEREBROVASCULAR ACCIDENT [None]
  - CHEST PAIN [None]
  - EATING DISORDER [None]
  - HEART RATE IRREGULAR [None]
  - HYPERKALAEMIA [None]
  - HYPERSENSITIVITY [None]
  - HYPERTENSION [None]
  - INSOMNIA [None]
  - MYOCARDIAL INFARCTION [None]
  - NAUSEA [None]
  - PNEUMONIA ASPIRATION [None]
  - RENAL FAILURE [None]
  - RENAL FAILURE CHRONIC [None]
  - SILENT MYOCARDIAL INFARCTION [None]
  - VOMITING [None]
